FAERS Safety Report 9472190 (Version 1)
Quarter: 2013Q3

REPORT INFORMATION
  Report Type: Spontaneous
  Country: ES (occurrence: ES)
  Receive Date: 20130823
  Receipt Date: 20130823
  Transmission Date: 20140515
  Serious: Yes (Other)
  Sender: FDA-Public Use
  Company Number: ES-JNJFOC-20130808720

PATIENT
  Age: 89 Year
  Sex: Male
  Weight: 84 kg

DRUGS (1)
  1. XARELTO [Suspect]
     Indication: CEREBROVASCULAR ACCIDENT
     Route: 048
     Dates: start: 201209, end: 20130604

REACTIONS (1)
  - Hepatitis cholestatic [Unknown]
